FAERS Safety Report 7998184-1 (Version None)
Quarter: 2011Q4

REPORT INFORMATION
  Report Type: 
  Country: None (occurrence: None)
  Receive Date: 20111221
  Receipt Date: 20110330
  Transmission Date: 20120403
  Serious: No
  Sender: FDA-Public Use
  Company Number: US-GLAXOSMITHKLINE-A0920714A

PATIENT
  Sex: Female

DRUGS (3)
  1. NIACIN [Concomitant]
  2. LOVAZA [Suspect]
     Indication: BLOOD CHOLESTEROL INCREASED
     Dosage: 2CAP TWICE PER DAY
     Route: 048
     Dates: start: 20100301
  3. BLOOD PRESSURE MEDICATION [Concomitant]

REACTIONS (2)
  - PRURITUS [None]
  - RASH [None]
